FAERS Safety Report 12303435 (Version 2)
Quarter: 2016Q3

REPORT INFORMATION
  Report Type: Spontaneous
  Country: US (occurrence: US)
  Receive Date: 20160426
  Receipt Date: 20160830
  Transmission Date: 20161109
  Serious: No
  Sender: FDA-Public Use
  Company Number: US-JNJFOC-20160408740

PATIENT
  Age: 55 Year
  Sex: Male

DRUGS (1)
  1. RISPERDAL CONSTA [Suspect]
     Active Substance: RISPERIDONE
     Indication: PRODUCT USED FOR UNKNOWN INDICATION
     Route: 030

REACTIONS (4)
  - Device malfunction [Unknown]
  - Device breakage [Unknown]
  - Inappropriate schedule of drug administration [Unknown]
  - Device leakage [Unknown]

NARRATIVE: CASE EVENT DATE: 20160408
